FAERS Safety Report 5969043-0 (Version None)
Quarter: 2008Q4

REPORT INFORMATION
  Report Type: 
  Country: None (occurrence: None)
  Receive Date: 20081126
  Receipt Date: 20081117
  Transmission Date: 20090506
  Serious: Yes (Death, Other)
  Sender: FDA-Public Use
  Company Number: JP-WYE-H06957308

PATIENT
  Age: 66 Year
  Sex: Male

DRUGS (5)
  1. ANCARON [Suspect]
     Dosage: INITIAL INFUSION OF 125 MG
     Route: 042
     Dates: start: 20080521, end: 20080523
  2. ANCARON [Suspect]
     Dosage: LOADING INFUSION OF 300 MG OR 500 MG
     Route: 042
     Dates: start: 20080521, end: 20080521
  3. ANCARON [Suspect]
     Dosage: MAINTENANCE INFUSION OF 125 MG X 2
     Route: 042
     Dates: start: 20080521, end: 20080523
  4. ANCARON [Suspect]
     Route: 048
     Dates: start: 20080524, end: 20080528
  5. ANCARON [Suspect]
     Route: 048
     Dates: start: 20080529

REACTIONS (6)
  - BLOOD PRESSURE DECREASED [None]
  - CARDIAC FAILURE [None]
  - CONDITION AGGRAVATED [None]
  - LUNG DISORDER [None]
  - PHLEBITIS [None]
  - PNEUMONIA [None]
